FAERS Safety Report 10149162 (Version 1)
Quarter: 2014Q2

REPORT INFORMATION
  Report Type: Spontaneous
  Country: US (occurrence: None)
  Receive Date: 20140430
  Receipt Date: 20140430
  Transmission Date: 20141212
  Serious: Yes (Hospitalization)
  Sender: FDA-Public Use
  Company Number: None

PATIENT
  Age: 72 Year
  Sex: Male
  Weight: 91.62 kg

DRUGS (2)
  1. BICALUTAMIDE [Suspect]
  2. LEUPROLIDE ACETATE [Suspect]
     Dates: end: 20131017

REACTIONS (12)
  - Presyncope [None]
  - Fatigue [None]
  - Dizziness [None]
  - Hyperhidrosis [None]
  - Atrioventricular block [None]
  - Bradycardia [None]
  - Hypotension [None]
  - Orthostatic hypotension [None]
  - Autonomic nervous system imbalance [None]
  - Renal impairment [None]
  - Weight increased [None]
  - Dysphemia [None]
